FAERS Safety Report 5698415-7 (Version None)
Quarter: 2008Q2

REPORT INFORMATION
  Report Type: 
  Country: None (occurrence: None)
  Receive Date: 20080403
  Receipt Date: 20080319
  Transmission Date: 20081010
  Serious: Yes (Other)
  Sender: FDA-Public Use
  Company Number: S08-IRL-01241-01

PATIENT
  Age: 43 Year
  Sex: Female

DRUGS (3)
  1. CITALOPRAM HYDROBROMIDE [Suspect]
     Dosage: 20 MG QD PO
     Route: 048
     Dates: start: 20080101, end: 20080101
  2. LEXAPRO [Suspect]
     Indication: DEPRESSIVE SYMPTOM
     Dosage: 20 MG QD PO
     Route: 048
     Dates: start: 20080101, end: 20080224
  3. LEXAPRO [Suspect]
     Indication: DEPRESSIVE SYMPTOM
     Dosage: 10 MG QD PO
     Route: 048
     Dates: start: 20080103, end: 20080101

REACTIONS (2)
  - PRURITUS [None]
  - WRONG DRUG ADMINISTERED [None]
